FAERS Safety Report 5546914-0 (Version None)
Quarter: 2007Q4

REPORT INFORMATION
  Report Type: 
  Country: None (occurrence: None)
  Receive Date: 20071206
  Receipt Date: 20071119
  Transmission Date: 20080405
  Serious: Yes (Hospitalization)
  Sender: FDA-Public Use
  Company Number: 2007S1011868

PATIENT
  Age: 88 Year
  Sex: Female

DRUGS (4)
  1. CIPROFLOXACIN [Suspect]
     Indication: DRUG USE FOR UNKNOWN INDICATION
     Dosage: 250 MG; ORAL;TWICE A DAY
     Route: 048
     Dates: start: 20071018, end: 20071023
  2. ASPIRIN [Concomitant]
  3. CANDESARTAN (CANDESARTAN) [Concomitant]
  4. TRIMETHOPRIM [Concomitant]

REACTIONS (3)
  - AGITATION [None]
  - CONFUSIONAL STATE [None]
  - PARANOIA [None]
